FAERS Safety Report 7256284-8 (Version None)
Quarter: 2011Q1

REPORT INFORMATION
  Report Type: 
  Country: None (occurrence: None)
  Receive Date: 20110129
  Receipt Date: 20100628
  Transmission Date: 20110831
  Serious: No
  Sender: FDA-Public Use
  Company Number: US-ABBOTT-10P-163-0649018-00

PATIENT
  Sex: Female
  Weight: 69.462 kg

DRUGS (2)
  1. HUMIRA [Suspect]
     Indication: PSORIASIS
     Dates: start: 20100607, end: 20100607
  2. AMBIEN CR [Concomitant]
     Indication: INSOMNIA

REACTIONS (1)
  - WRONG TECHNIQUE IN DRUG USAGE PROCESS [None]
